FAERS Safety Report 5375185-3 (Version None)
Quarter: 2007Q2

REPORT INFORMATION
  Report Type: 
  Country: None (occurrence: None)
  Receive Date: 20070629
  Receipt Date: 20070625
  Transmission Date: 20071010
  Serious: Yes (Hospitalization)
  Sender: FDA-Public Use
  Company Number: PHNU2007DE02022

PATIENT
  Age: 68 Year
  Sex: Female
  Weight: 80 kg

DRUGS (6)
  1. EXFORGE [Suspect]
     Indication: HYPERTENSION
     Dosage: 1-0-0 TABLET/DAY
     Route: 048
     Dates: start: 20070109, end: 20070101
  2. CARVEDILOL [Concomitant]
     Dosage: 1-0-1 DF/DAY
     Route: 048
     Dates: start: 20040101
  3. MARCUMAR [Concomitant]
     Indication: THROMBOSIS PROPHYLAXIS
     Dates: start: 20070501
  4. DIOVAN [Suspect]
     Indication: HYPERTENSION
     Route: 048
     Dates: start: 20061114
  5. DIOVAN [Suspect]
     Dosage: 0-0-1 TABLET/DAY
     Route: 048
     Dates: start: 20070109
  6. AMLODIPINE [Concomitant]
     Dosage: 5 MG, QD
     Dates: start: 20061114

REACTIONS (3)
  - ATRIAL FIBRILLATION [None]
  - CARDIAC FAILURE [None]
  - OEDEMA PERIPHERAL [None]
